FAERS Safety Report 4704342-1 (Version None)
Quarter: 2005Q2

REPORT INFORMATION
  Report Type: 
  Country: None (occurrence: None)
  Receive Date: 20050630
  Receipt Date: 20050622
  Transmission Date: 20051028
  Serious: Yes (Death)
  Sender: FDA-Public Use
  Company Number: US-JNJFOC-20050606177

PATIENT
  Sex: Female

DRUGS (19)
  1. INFLIXIMAB [Suspect]
     Indication: RHEUMATOID ARTHRITIS
     Route: 042
  2. METHOTREXATE [Concomitant]
  3. TAMOXIFEN [Concomitant]
  4. COZAAR [Concomitant]
  5. FOLIC ACID [Concomitant]
  6. ACTONEL [Concomitant]
  7. RANITIDINE [Concomitant]
  8. CALCIUM GLUCONATE [Concomitant]
  9. MULTI-VITAMIN [Concomitant]
  10. MULTI-VITAMIN [Concomitant]
  11. MULTI-VITAMIN [Concomitant]
  12. MULTI-VITAMIN [Concomitant]
  13. MULTI-VITAMIN [Concomitant]
  14. MULTI-VITAMIN [Concomitant]
  15. MULTI-VITAMIN [Concomitant]
  16. MULTI-VITAMIN [Concomitant]
  17. STOOL SOFTNER [Concomitant]
     Dosage: 3-4 TABS AT BEDTIME
  18. METAMUCIL [Concomitant]
     Dosage: 3-4 TABS DAILY
  19. EQUATE SLEEP AID [Concomitant]
     Dosage: AT BEDTIME.

REACTIONS (1)
  - NEOPLASM MALIGNANT [None]
